FAERS Safety Report 9167794 (Version 1)
Quarter: 2013Q1

REPORT INFORMATION
  Report Type: Spontaneous
  Country: ES (occurrence: None)
  Receive Date: 20130307
  Receipt Date: 20130307
  Transmission Date: 20140127
  Serious: Yes (Hospitalization)
  Sender: FDA-Public Use
  Company Number: PMES20130001

PATIENT
  Age: 45 Year
  Sex: Female

DRUGS (5)
  1. PROMETHAZINE [Suspect]
  2. CLONAZEPAM (CLONAZEPAM) (CLONAZEPAM) [Suspect]
  3. OXCARBAZEPINE (OXCARBAZEPINE) TABLET, 300MG [Suspect]
  4. QUETIAPINE (QUETIAPINE) (QUETIAPINE) [Suspect]
  5. PHENOBARBITAL [Suspect]

REACTIONS (5)
  - Unresponsive to stimuli [None]
  - Miosis [None]
  - Rhabdomyolysis [None]
  - Toxicity to various agents [None]
  - Intentional overdose [None]
